FAERS Safety Report 6092834-5 (Version None)
Quarter: 2009Q1

REPORT INFORMATION
  Report Type: 
  Country: None (occurrence: None)
  Receive Date: 20090225
  Receipt Date: 20090216
  Transmission Date: 20090719
  Serious: Yes (Other)
  Sender: FDA-Public Use
  Company Number: US-ROXANE LABORATORIES, INC.-2009-RO-00154RO

PATIENT
  Age: 16 Year
  Sex: Male

DRUGS (16)
  1. METHOTREXATE [Suspect]
     Indication: T-CELL TYPE ACUTE LEUKAEMIA
     Route: 037
  2. METHOTREXATE [Suspect]
     Route: 037
  3. PREDNISONE [Suspect]
     Indication: T-CELL TYPE ACUTE LEUKAEMIA
  4. CYCLOPHOSPHAMIDE [Suspect]
     Indication: T-CELL TYPE ACUTE LEUKAEMIA
  5. LEUCOVORIN CALCIUM [Suspect]
     Indication: PROPHYLAXIS
  6. LEUCOVORIN CALCIUM [Suspect]
  7. HYDROCORTISONE [Suspect]
     Indication: T-CELL TYPE ACUTE LEUKAEMIA
     Route: 037
  8. HYDROCORTISONE [Suspect]
     Route: 037
  9. CYTARABINE [Suspect]
     Indication: T-CELL TYPE ACUTE LEUKAEMIA
     Route: 037
  10. CYTARABINE [Suspect]
  11. AMINOPHYLLINE [Suspect]
     Indication: PROPHYLAXIS
  12. AMINOPHYLLINE [Suspect]
  13. VINCRISTINE [Suspect]
     Indication: T-CELL TYPE ACUTE LEUKAEMIA
  14. DAUNORUBICIN HCL [Suspect]
     Indication: T-CELL TYPE ACUTE LEUKAEMIA
  15. PEG-ASPARAGINASE [Suspect]
     Indication: T-CELL TYPE ACUTE LEUKAEMIA
  16. THIOGUANINE [Suspect]
     Indication: T-CELL TYPE ACUTE LEUKAEMIA

REACTIONS (4)
  - CENTRAL NERVOUS SYSTEM LESION [None]
  - LABORATORY TEST ABNORMAL [None]
  - LEUKOENCEPHALOPATHY [None]
  - NEUROTOXICITY [None]
